FAERS Safety Report 9640392 (Version 1)
Quarter: 2013Q4

REPORT INFORMATION
  Report Type: Spontaneous
  Country: US (occurrence: None)
  Receive Date: 20131021
  Receipt Date: 20131021
  Transmission Date: 20140711
  Serious: Yes (Disabling)
  Sender: FDA-Public Use
  Company Number: 2013P1020020

PATIENT
  Age: 15 Year
  Sex: Female

DRUGS (2)
  1. RIFAMPIN [Suspect]
     Indication: PRURITUS
     Route: 048
     Dates: start: 1998, end: 20131007
  2. RIFAMPIN [Suspect]
     Indication: JAUNDICE
     Route: 048
     Dates: start: 1998, end: 20131007

REACTIONS (5)
  - Visual impairment [None]
  - Visual field defect [None]
  - Bone pain [None]
  - Arthralgia [None]
  - Liver disorder [None]
